FAERS Safety Report 9416850 (Version 1)
Quarter: 2013Q3

REPORT INFORMATION
  Report Type: Spontaneous
  Country: US (occurrence: None)
  Receive Date: 20130719
  Receipt Date: 20130719
  Transmission Date: 20140515
  Serious: Yes (Death, Hospitalization)
  Sender: FDA-Public Use
  Company Number: USA/USA/13/0031756

PATIENT
  Age: 24 Year
  Sex: Female

DRUGS (4)
  1. TACROLIMUS (TACROLIMUS) [Suspect]
     Indication: PRODUCT USED FOR UNKNOWN INDICATION
     Dosage: 20 MG, 1 IN 1 D, UNKNOWN
  2. MYCOPHENOLATE MOFETIL (MYCOPHENOLATE MOFETIL) [Suspect]
     Indication: PRODUCT USED FOR UNKNOWN INDICATION
     Dosage: 1000 MG, 1 IN 1 D, UNKNOWN
  3. PREDNISONE (PREDNISONE) [Suspect]
     Indication: PRODUCT USED FOR UNKNOWN INDICATION
  4. ACYCLOVIR (ACICLOVIR) (ACICLOVIR) [Suspect]
     Indication: HERPES SIMPLEX HEPATITIS
     Dosage: 10 MG/KG, 1 IN 8 HR, INTRAVENOUS
     Route: 042

REACTIONS (24)
  - Herpes simplex hepatitis [None]
  - Vaginal discharge [None]
  - Pneumonia [None]
  - Hepatosplenomegaly [None]
  - Leukopenia [None]
  - Thrombocytopenia [None]
  - Immunosuppressant drug level increased [None]
  - Cardiogenic shock [None]
  - Fungaemia [None]
  - Candida infection [None]
  - Renal failure [None]
  - Upper gastrointestinal haemorrhage [None]
  - Shock haemorrhagic [None]
  - Abdominal pain [None]
  - Victim of sexual abuse [None]
  - Haemoglobin decreased [None]
  - Pulmonary oedema [None]
  - Hepatic necrosis [None]
  - Coagulopathy [None]
  - Cardiac failure [None]
  - Left ventricular dysfunction [None]
  - Haemodialysis [None]
  - Device related infection [None]
  - Viraemia [None]
